FAERS Safety Report 5227875-0 (Version None)
Quarter: 2007Q1

REPORT INFORMATION
  Report Type: 
  Country: None (occurrence: None)
  Receive Date: 20070202
  Receipt Date: 20070123
  Transmission Date: 20070707
  Serious: Yes (Disabling, Other)
  Sender: FDA-Public Use
  Company Number: FR-PFIZER INC-2007002586

PATIENT
  Sex: Female
  Weight: 58 kg

DRUGS (5)
  1. LYRICA [Suspect]
     Indication: IMMUNE SYSTEM DISORDER
  2. LYRICA [Suspect]
     Indication: NEURALGIA
  3. ACETAMINOPHEN [Concomitant]
     Route: 048
  4. CLONAZEPAM [Concomitant]
  5. RITUXIMAB [Concomitant]
     Dates: start: 20061212, end: 20061222

REACTIONS (3)
  - ARTHRALGIA [None]
  - JOINT EFFUSION [None]
  - PAIN [None]
